FAERS Safety Report 14744262 (Version 2)
Quarter: 2018Q2

REPORT INFORMATION
  Report Type: Spontaneous
  Country: US (occurrence: US)
  Receive Date: 20180411
  Receipt Date: 20180515
  Transmission Date: 20180711
  Serious: Yes (Disabling, Other)
  Sender: FDA-Public Use
  Company Number: US-B.I. PHARMACEUTICALS,INC./RIDGEFIELD-2018-BI-019705

PATIENT
  Age: 57 Year
  Sex: Male
  Weight: 122.47 kg

DRUGS (1)
  1. JARDIANCE [Suspect]
     Active Substance: EMPAGLIFLOZIN
     Indication: TYPE 2 DIABETES MELLITUS
     Route: 048
     Dates: start: 2015, end: 201803

REACTIONS (2)
  - Skin ulcer [Recovered/Resolved]
  - Toe amputation [Unknown]

NARRATIVE: CASE EVENT DATE: 20171225
